FAERS Safety Report 14030619 (Version 5)
Quarter: 2019Q2

REPORT INFORMATION
  Report Type: Report from Study
  Country: US (occurrence: US)
  Receive Date: 20171002
  Receipt Date: 20190514
  Transmission Date: 20190711
  Serious: Yes (Death, Hospitalization)
  Sender: FDA-Public Use
  Company Number: US-ROCHE-1997762

PATIENT
  Age: 69 Year
  Sex: Male

DRUGS (14)
  1. PRASUGREL. [Concomitant]
     Active Substance: PRASUGREL
     Route: 065
  2. PRAVASTATIN. [Concomitant]
     Active Substance: PRAVASTATIN
     Route: 065
  3. METOPROLOL. [Concomitant]
     Active Substance: METOPROLOL
     Route: 065
  4. ASPIRIN [ACETYLSALICYLIC ACID] [Concomitant]
     Active Substance: ASPIRIN
     Route: 065
  5. TRAMADOL. [Concomitant]
     Active Substance: TRAMADOL
     Route: 065
  6. DOCUSATE SODIUM. [Concomitant]
     Active Substance: DOCUSATE SODIUM
     Route: 065
  7. OBINUTUZUMAB. [Suspect]
     Active Substance: OBINUTUZUMAB
     Indication: CHRONIC LYMPHOCYTIC LEUKAEMIA RECURRENT
     Dosage: 100 MG ON DAY 1, 900 MG BY VEIN ON DAY 2, AND 1000 MG ON DAY 8 AND DAY 15 FOR THE FIRST CYCLE, THEN
     Route: 042
     Dates: start: 20170721
  8. LENALIDOMIDE [Suspect]
     Active Substance: LENALIDOMIDE
     Indication: CHRONIC LYMPHOCYTIC LEUKAEMIA RECURRENT
     Dosage: 5 MG BY MOUTH PER DAY FROM DAY 9 UNTIL DAY 56, AND AT 10 MG PER DAY FROM DAY 57 UNTIL PROGRESSION OR
     Route: 048
     Dates: start: 20170721
  9. ALLOPURINOL. [Concomitant]
     Active Substance: ALLOPURINOL
     Route: 065
  10. LENALIDOMIDE [Suspect]
     Active Substance: LENALIDOMIDE
     Indication: LYMPHOCYTIC LYMPHOMA
  11. ROPINIROLE. [Concomitant]
     Active Substance: ROPINIROLE
     Route: 065
  12. OBINUTUZUMAB. [Suspect]
     Active Substance: OBINUTUZUMAB
     Indication: LYMPHOCYTIC LYMPHOMA
  13. FERROUS SULFATE. [Concomitant]
     Active Substance: FERROUS SULFATE
     Route: 065
  14. AMLODIPINE BESILATE [Concomitant]
     Active Substance: AMLODIPINE BESYLATE
     Route: 065

REACTIONS (3)
  - Dyspnoea [Fatal]
  - Respiratory failure [Fatal]
  - Pyrexia [Recovered/Resolved]

NARRATIVE: CASE EVENT DATE: 20170825
